FAERS Safety Report 6196325-2 (Version None)
Quarter: 2009Q2

REPORT INFORMATION
  Report Type: 
  Country: None (occurrence: None)
  Receive Date: 20090515
  Receipt Date: 20090125
  Transmission Date: 20091009
  Serious: Yes (Life-Threatening)
  Sender: FDA-Public Use
  Company Number: AE 2009-016

PATIENT
  Age: 45 Year
  Sex: Male

DRUGS (7)
  1. FAZACLO ODT [Suspect]
     Dosage: 100 MG TID PO
     Route: 048
     Dates: start: 20080321, end: 20090107
  2. ATROPINE [Concomitant]
  3. DEPAKOTE [Concomitant]
  4. PEPCID [Concomitant]
  5. METFORMIN HCL [Concomitant]
  6. SIMVASTATIN [Concomitant]
  7. TRAMADOL HCL [Concomitant]

REACTIONS (1)
  - AGRANULOCYTOSIS [None]
